FAERS Safety Report 8213995-5 (Version None)
Quarter: 2012Q1

REPORT INFORMATION
  Report Type: 
  Country: None (occurrence: None)
  Receive Date: 20120316
  Receipt Date: 20120312
  Transmission Date: 20120608
  Serious: No
  Sender: FDA-Public Use
  Company Number: US-PFIZER INC-2012066366

PATIENT
  Sex: Female

DRUGS (4)
  1. PROTONIX [Suspect]
     Dosage: UNK
  2. CELEBREX [Suspect]
     Dosage: UNK
  3. PRISTIQ [Suspect]
     Dosage: UNK
  4. PROVERA [Suspect]
     Dosage: UNK

REACTIONS (2)
  - UPPER RESPIRATORY TRACT INFECTION [None]
  - NASOPHARYNGITIS [None]
